FAERS Safety Report 13538773 (Version 3)
Quarter: 2017Q3

REPORT INFORMATION
  Report Type: Report from Study
  Country: None (occurrence: US)
  Receive Date: 20170512
  Receipt Date: 20170828
  Transmission Date: 20171127
  Serious: Yes (Hospitalization)
  Sender: FDA-Public Use
  Company Number: US-ABBVIE-17K-163-1971754-00

PATIENT
  Sex: Female

DRUGS (2)
  1. HUMIRA [Suspect]
     Active Substance: ADALIMUMAB
     Indication: PSORIATIC ARTHROPATHY
     Route: 058
     Dates: start: 2016, end: 201701
  2. HUMIRA [Suspect]
     Active Substance: ADALIMUMAB
     Route: 058
     Dates: start: 20170326

REACTIONS (11)
  - Weight increased [Unknown]
  - Appendicitis [Unknown]
  - Joint swelling [Recovered/Resolved]
  - Joint stiffness [Recovered/Resolved]
  - Arthralgia [Recovered/Resolved]
  - Pain [Not Recovered/Not Resolved]
  - Dysphagia [Unknown]
  - Ovarian mass [Unknown]
  - Hypersensitivity [Unknown]
  - Allergic oedema [Unknown]
  - Discomfort [Unknown]

NARRATIVE: CASE EVENT DATE: 2017
